FAERS Safety Report 8305382 (Version 2)
Quarter: 2013Q1

REPORT INFORMATION
  Report Type: Spontaneous
  Country: US (occurrence: US)
  Receive Date: 20111221
  Receipt Date: 20130108
  Transmission Date: 20140127
  Serious: No
  Sender: FDA-Public Use
  Company Number: US-GLAXOSMITHKLINE-A0950252A

PATIENT
  Age: 65 Year
  Sex: Female

DRUGS (6)
  1. LOVAZA [Suspect]
     Indication: BLOOD TRIGLYCERIDES INCREASED
     Dosage: 2G TWICE PER DAY
     Route: 048
     Dates: start: 2005, end: 20111022
  2. METFORMIN [Concomitant]
  3. LISINOPRIL [Concomitant]
  4. METOPROLOL [Concomitant]
  5. GLUCOSAMINE CHONDRITIN [Concomitant]
  6. BABY ASPIRIN [Concomitant]

REACTIONS (4)
  - Nausea [Recovered/Resolved]
  - Malaise [Unknown]
  - Malaise [Unknown]
  - Product quality issue [Unknown]
